FAERS Safety Report 10144099 (Version 13)
Quarter: 2021Q4

REPORT INFORMATION
  Report Type: Spontaneous
  Country: FR (occurrence: FR)
  Receive Date: 20140430
  Receipt Date: 20211215
  Transmission Date: 20220303
  Serious: Yes (Hospitalization, Disabling, Congenital Anomaly, Other)
  Sender: FDA-Public Use
  Company Number: FR-ABBOTT-06P-056-0325643-00

PATIENT
  Age: 8 Month
  Sex: Female
  Weight: 2.85 kg

DRUGS (1)
  1. VALPROATE SODIUM [Suspect]
     Active Substance: VALPROATE SODIUM
     Indication: Maternal exposure timing unspecified
     Route: 064

REACTIONS (63)
  - Psychomotor retardation [Unknown]
  - Fatigue [Unknown]
  - Clumsiness [Unknown]
  - Aggression [Not Recovered/Not Resolved]
  - Foetal anticonvulsant syndrome [Unknown]
  - Bronchiolitis [Recovering/Resolving]
  - Pneumonia [Recovering/Resolving]
  - Hyperacusis [Unknown]
  - Cerebral atrophy [Unknown]
  - Balance disorder [Unknown]
  - Coordination abnormal [Unknown]
  - Learning disorder [Unknown]
  - Dysmorphism [Unknown]
  - Nose deformity [Unknown]
  - Hypertelorism [Unknown]
  - Dysmorphism [Unknown]
  - Language disorder [Unknown]
  - Dysgraphia [Unknown]
  - Partial seizures [Unknown]
  - Dyskinesia [Unknown]
  - Electroencephalogram abnormal [Unknown]
  - Deafness [Unknown]
  - Hypoacusis [Unknown]
  - Cleft uvula [Unknown]
  - Encephalopathy [Unknown]
  - Hypotonia [Unknown]
  - Childhood asthma [Unknown]
  - Attention deficit hyperactivity disorder [Unknown]
  - Memory impairment [Unknown]
  - Psychomotor skills impaired [Unknown]
  - Speech sound disorder [Unknown]
  - Communication disorder [Unknown]
  - Psychiatric symptom [Unknown]
  - Disorientation [Unknown]
  - Sleep disorder [Unknown]
  - Disorientation [Unknown]
  - Abnormal behaviour [Unknown]
  - Disturbance in attention [Unknown]
  - Dysmorphism [Unknown]
  - Clinodactyly [Unknown]
  - Myopia [Unknown]
  - Fall [Unknown]
  - Hypertonia [Unknown]
  - Urinary incontinence [Unknown]
  - Urinary incontinence [Unknown]
  - Pollakiuria [Unknown]
  - Micturition urgency [Unknown]
  - Ear infection [Unknown]
  - Nasopharyngeal reflux [Unknown]
  - Foetal exposure during pregnancy [Unknown]
  - Hypertelorism [Unknown]
  - Gastrooesophageal reflux disease [Unknown]
  - Macroglossia [Unknown]
  - Hyperacusis [Unknown]
  - Enuresis [Recovering/Resolving]
  - Agitation [Unknown]
  - Scoliosis [Unknown]
  - Genital disorder [Unknown]
  - Ear disorder [Unknown]
  - Nasal disorder [Unknown]
  - Oropharyngeal discomfort [Unknown]
  - Ocular discomfort [Unknown]
  - Cardiac murmur [Unknown]

NARRATIVE: CASE EVENT DATE: 20050528
